FAERS Safety Report 14989565 (Version 1)
Quarter: 2018Q2

REPORT INFORMATION
  Report Type: Spontaneous
  Country: US (occurrence: US)
  Receive Date: 20180608
  Receipt Date: 20180608
  Transmission Date: 20180711
  Serious: No
  Sender: FDA-Public Use
  Company Number: US-AMGEN-USASP2018029687

PATIENT
  Age: 11 Year
  Sex: Male

DRUGS (1)
  1. BLINCYTO [Suspect]
     Active Substance: BLINATUMOMAB
     Indication: ACUTE LYMPHOCYTIC LEUKAEMIA RECURRENT
     Dosage: 15 MUG/KG, UNK
     Route: 065
     Dates: start: 20180227

REACTIONS (9)
  - Vomiting [Recovering/Resolving]
  - Gait disturbance [Recovered/Resolved]
  - Tremor [Recovered/Resolved]
  - Tachycardia [Recovering/Resolving]
  - Headache [Recovering/Resolving]
  - Pyrexia [Recovering/Resolving]
  - Dysgraphia [Recovered/Resolved]
  - Blood pressure decreased [Recovering/Resolving]
  - Nausea [Recovering/Resolving]

NARRATIVE: CASE EVENT DATE: 20180227
